FAERS Safety Report 19534549 (Version 1)
Quarter: 2021Q3

REPORT INFORMATION
  Report Type: Spontaneous
  Country: US (occurrence: US)
  Receive Date: 20210714
  Receipt Date: 20210714
  Transmission Date: 20211014
  Serious: Yes (Other)
  Sender: FDA-Public Use
  Company Number: US-NATCO PHARMA LIMITED-2113800

PATIENT
  Age: 71 Year
  Sex: Female

DRUGS (1)
  1. LETROZOLE. [Suspect]
     Active Substance: LETROZOLE

REACTIONS (5)
  - Vision blurred [None]
  - Tooth abscess [None]
  - Contusion [None]
  - Breast pain [None]
  - Cataract [None]
